FAERS Safety Report 24445746 (Version 1)
Quarter: 2024Q4

REPORT INFORMATION
  Report Type: Spontaneous
  Country: US (occurrence: US)
  Receive Date: 20241016
  Receipt Date: 20241016
  Transmission Date: 20250114
  Serious: No
  Sender: Unknown Manufacturer
  Company Number: US-SHIELD THERAPEUTICS-US-STX-24-00026

PATIENT
  Age: 33 Year
  Sex: Female
  Weight: 79.65 kg

DRUGS (2)
  1. ACCRUFER [Suspect]
     Active Substance: FERRIC MALTOL
     Indication: Anaemia
     Dosage: UNKNOWN
     Route: 065
  2. PROAIR HFA [Concomitant]
     Active Substance: ALBUTEROL SULFATE
     Indication: Product used for unknown indication
     Dosage: UNKNOWN
     Route: 065

REACTIONS (4)
  - Tremor [Unknown]
  - Loss of consciousness [Unknown]
  - Gait inability [Unknown]
  - Dizziness [Unknown]

NARRATIVE: CASE EVENT DATE: 20230430
